FAERS Safety Report 6382034-3 (Version None)
Quarter: 2009Q3

REPORT INFORMATION
  Report Type: 
  Country: None (occurrence: None)
  Receive Date: 20090930
  Receipt Date: 20090925
  Transmission Date: 20100115
  Serious: Yes (Death, Hospitalization)
  Sender: FDA-Public Use
  Company Number: PHHO2009US09835

PATIENT
  Sex: Female
  Weight: 55.5 kg

DRUGS (2)
  1. RAD 666 RAD+TAB [Suspect]
     Indication: RENAL CELL CARCINOMA
     Dosage: UNK
     Route: 048
     Dates: start: 20090407, end: 20090714
  2. AVASTIN [Suspect]
     Indication: RENAL CELL CARCINOMA
     Dosage: UNK
     Route: 042
     Dates: start: 20090407, end: 20090714

REACTIONS (16)
  - ABDOMINAL PAIN [None]
  - CAECOPEXY [None]
  - CARDIAC FAILURE CONGESTIVE [None]
  - CEMENT EMBOLISM [None]
  - CERVICAL CORD COMPRESSION [None]
  - DISEASE PROGRESSION [None]
  - EJECTION FRACTION DECREASED [None]
  - INTERVERTEBRAL DISC PROTRUSION [None]
  - INTESTINAL OBSTRUCTION [None]
  - METASTASES TO SPINE [None]
  - OPEN REDUCTION OF FRACTURE [None]
  - PAIN [None]
  - PLEURAL EFFUSION [None]
  - RESORPTION BONE INCREASED [None]
  - SPINAL COMPRESSION FRACTURE [None]
  - VERTEBROPLASTY [None]
